FAERS Safety Report 7475875-2 (Version None)
Quarter: 2011Q2

REPORT INFORMATION
  Report Type: 
  Country: None (occurrence: None)
  Receive Date: 20110504
  Receipt Date: 20110421
  Transmission Date: 20111010
  Serious: Yes (Hospitalization)
  Sender: FDA-Public Use
  Company Number: UCM201104-000007

PATIENT
  Age: 85 Year
  Sex: Female

DRUGS (6)
  1. ISOSORBIDE MONONITRATE [Suspect]
  2. BENDROFLUMETHIAZIDE [Suspect]
  3. OMEPRAZOLE [Suspect]
  4. ASPIRIN [Suspect]
  5. MELOXICAM [Suspect]
  6. RAMIPRIL [Suspect]

REACTIONS (1)
  - CUTANEOUS LUPUS ERYTHEMATOSUS [None]
